FAERS Safety Report 14442194 (Version 2)
Quarter: 2019Q1

REPORT INFORMATION
  Report Type: Spontaneous
  Country: US (occurrence: US)
  Receive Date: 20180125
  Receipt Date: 20190204
  Transmission Date: 20190417
  Serious: No
  Sender: FDA-Public Use
  Company Number: US-PFIZER INC-2018030819

PATIENT
  Age: 65 Year
  Sex: Female

DRUGS (1)
  1. LOPID [Suspect]
     Active Substance: GEMFIBROZIL
     Dosage: UNK

REACTIONS (4)
  - Drug hypersensitivity [Unknown]
  - Nausea [Unknown]
  - Nervousness [Unknown]
  - Pruritus [Unknown]
